FAERS Safety Report 8311108-2 (Version None)
Quarter: 2012Q2

REPORT INFORMATION
  Report Type: 
  Country: None (occurrence: None)
  Receive Date: 20120425
  Receipt Date: 20120418
  Transmission Date: 20120825
  Serious: Yes (Other)
  Sender: FDA-Public Use
  Company Number: FR-ALLERGAN-1205550US

PATIENT
  Age: 84 Year
  Sex: Male

DRUGS (3)
  1. BIMATOPROST AND TIMOLOL MALEATE [Suspect]
     Indication: GLAUCOMA
     Dosage: 2 GTT, QPM
     Route: 047
     Dates: start: 20110101
  2. ALLOPURINOL [Concomitant]
     Indication: GOUT
  3. PLAVIX [Concomitant]
     Indication: PRODUCT USED FOR UNKNOWN INDICATION

REACTIONS (1)
  - CYANOSIS [None]
